FAERS Safety Report 25466228 (Version 1)
Quarter: 2025Q2

REPORT INFORMATION
  Report Type: Spontaneous
  Country: US (occurrence: US)
  Receive Date: 20250623
  Receipt Date: 20250623
  Transmission Date: 20250716
  Serious: Yes (Hospitalization)
  Sender: ROCHE
  Company Number: US-ROCHE-10000313924

PATIENT
  Age: 75 Year
  Sex: Female

DRUGS (3)
  1. GAZYVA [Suspect]
     Active Substance: OBINUTUZUMAB
     Indication: Chronic lymphocytic leukaemia
     Route: 065
     Dates: start: 20250612
  2. GAZYVA [Suspect]
     Active Substance: OBINUTUZUMAB
     Indication: Lymphocytic lymphoma
  3. RASBURICASE [Concomitant]
     Active Substance: RASBURICASE
     Indication: Tumour lysis syndrome

REACTIONS (1)
  - Tumour lysis syndrome [Unknown]

NARRATIVE: CASE EVENT DATE: 20250612
